FAERS Safety Report 8193963-2 (Version None)
Quarter: 2012Q1

REPORT INFORMATION
  Report Type: 
  Country: None (occurrence: None)
  Receive Date: 20120308
  Receipt Date: 20120228
  Transmission Date: 20120608
  Serious: Yes (Hospitalization)
  Sender: FDA-Public Use
  Company Number: FR-TEVA-325933ISR

PATIENT
  Sex: Male

DRUGS (4)
  1. FLUOROURACIL [Suspect]
     Indication: GASTRIC CANCER
     Route: 042
     Dates: start: 20110810
  2. IRINOTECAN HCL [Suspect]
     Indication: GASTRIC CANCER
     Route: 042
     Dates: start: 20110810
  3. OXALIPLATIN [Suspect]
     Indication: GASTRIC CANCER
     Route: 042
     Dates: start: 20110810
  4. CALCIC LEUCOVORIN [Concomitant]
     Indication: GASTRIC CANCER
     Route: 042
     Dates: start: 20110810

REACTIONS (3)
  - THROMBOCYTOPENIA [None]
  - CHOLINERGIC SYNDROME [None]
  - MUCOSAL INFLAMMATION [None]
